FAERS Safety Report 12077738 (Version 2)
Quarter: 2016Q1

REPORT INFORMATION
  Report Type: Report from Study
  Country: ES (occurrence: ES)
  Receive Date: 20160215
  Receipt Date: 20160222
  Transmission Date: 20160526
  Serious: Yes (Hospitalization, Other)
  Sender: FDA-Public Use
  Company Number: ES-GLAXOSMITHKLINE-ES2016016158

PATIENT
  Age: 58 Year
  Sex: Male
  Weight: 71 kg

DRUGS (4)
  1. URBASON [Concomitant]
     Active Substance: METHYLPREDNISOLONE
     Indication: CHRONIC OBSTRUCTIVE PULMONARY DISEASE
     Dosage: 40 MG, 1D
     Route: 042
     Dates: start: 20151228, end: 20151229
  2. FLUTICASONE FUROATE + VILANTEROL TRIFENATATE [Suspect]
     Active Substance: FLUTICASONE FUROATE\VILANTEROL TRIFENATATE
     Indication: CHRONIC OBSTRUCTIVE PULMONARY DISEASE
     Dosage: UNK, QD
     Route: 055
     Dates: start: 20151023
  3. PREDNISONA [Concomitant]
     Active Substance: PREDNISONE
     Indication: CHRONIC OBSTRUCTIVE PULMONARY DISEASE
     Dosage: 30 MG, TID
     Route: 048
     Dates: start: 20151129, end: 20160104
  4. LEVOFLOXACINO [Concomitant]
     Indication: INFECTION
     Dosage: 500 MG, 1D
     Route: 048
     Dates: start: 20151228, end: 20160104

REACTIONS (1)
  - Chronic obstructive pulmonary disease [Recovered/Resolved]

NARRATIVE: CASE EVENT DATE: 20151228
